FAERS Safety Report 19337125 (Version 3)
Quarter: 2021Q3

REPORT INFORMATION
  Report Type: Spontaneous
  Country: US (occurrence: US)
  Receive Date: 20210530
  Receipt Date: 20210820
  Transmission Date: 20211014
  Serious: No
  Sender: FDA-Public Use
  Company Number: US-LUPIN PHARMACEUTICALS INC.-2021-08085

PATIENT
  Age: 29 Year
  Sex: Male
  Weight: 65.76 kg

DRUGS (3)
  1. GATIFLOXACIN. [Suspect]
     Active Substance: GATIFLOXACIN
     Dosage: 1 DROP, QID
     Route: 047
     Dates: start: 202105
  2. GATIFLOXACIN. [Suspect]
     Active Substance: GATIFLOXACIN
     Indication: PRODUCT USED FOR UNKNOWN INDICATION
     Dosage: 1 DROP, QID
     Route: 047
     Dates: start: 202105
  3. PREDNISOLONE. [Concomitant]
     Active Substance: PREDNISOLONE
     Indication: PRODUCT USED FOR UNKNOWN INDICATION
     Dosage: UNK
     Route: 065

REACTIONS (3)
  - Eye inflammation [Recovered/Resolved]
  - Product delivery mechanism issue [Unknown]
  - Poor quality product administered [Unknown]
